FAERS Safety Report 22113561 (Version 3)
Quarter: 2023Q1

REPORT INFORMATION
  Report Type: Report from Study
  Country: US (occurrence: US)
  Receive Date: 20230320
  Receipt Date: 20230324
  Transmission Date: 20230417
  Serious: No
  Sender: FDA-Public Use
  Company Number: US-002147023-NVSC2023US059910

PATIENT
  Sex: Male

DRUGS (4)
  1. COSENTYX [Suspect]
     Active Substance: SECUKINUMAB
     Indication: Psoriasis
     Route: 058
  2. METHOTREXATE [Suspect]
     Active Substance: METHOTREXATE
     Indication: Psoriasis
     Route: 065
  3. CLOBETASOL [Suspect]
     Active Substance: CLOBETASOL
     Indication: Psoriasis
     Route: 065
  4. TRIAMCINOLONE [Suspect]
     Active Substance: TRIAMCINOLONE
     Indication: Psoriasis
     Dosage: 0.1 %, BID
     Route: 061

REACTIONS (2)
  - Psoriasis [Unknown]
  - Drug ineffective [Unknown]
